FAERS Safety Report 16332895 (Version 1)
Quarter: 2019Q2

REPORT INFORMATION
  Report Type: Spontaneous
  Country: US (occurrence: US)
  Receive Date: 20190520
  Receipt Date: 20190520
  Transmission Date: 20190711
  Serious: No
  Sender: FDA-Public Use
  Company Number: US-PFIZER INC-2019209631

PATIENT
  Age: 62 Year
  Sex: Male
  Weight: 115.19 kg

DRUGS (2)
  1. SOMAVERT [Suspect]
     Active Substance: PEGVISOMANT
     Dosage: 40 MG, UNK (40MG INJECTION UNDER THE SKIN IN THE STOMACH AREA ONCE)
     Route: 058
  2. SOMAVERT [Suspect]
     Active Substance: PEGVISOMANT
     Indication: ERYTHROMELALGIA
     Dosage: 10 MG, 1X/DAY (10MG INJECTION UNDER THE SKIN IN STOMACH AREA EVERY DAY)
     Route: 058

REACTIONS (3)
  - Incorrect route of product administration [Unknown]
  - Product dose omission [Unknown]
  - Faeces discoloured [Recovered/Resolved]
